FAERS Safety Report 18659770 (Version 5)
Quarter: 2021Q2

REPORT INFORMATION
  Report Type: Spontaneous
  Country: CA (occurrence: CA)
  Receive Date: 20201223
  Receipt Date: 20210521
  Transmission Date: 20210717
  Serious: Yes (Hospitalization, Other)
  Sender: FDA-Public Use
  Company Number: CA-GILEAD-2020-0506456

PATIENT
  Age: 54 Year
  Sex: Male

DRUGS (9)
  1. RISPERIDONE. [Interacting]
     Active Substance: RISPERIDONE
     Indication: PRODUCT USED FOR UNKNOWN INDICATION
     Dosage: 2 MG, QD
     Route: 065
     Dates: start: 20200908, end: 20200910
  2. QUETIAPINE. [Interacting]
     Active Substance: QUETIAPINE
     Indication: PRODUCT USED FOR UNKNOWN INDICATION
     Dosage: BETWEEN 50?100 MG, UNK
     Route: 065
     Dates: start: 20200831, end: 20200910
  3. GENVOYA [Suspect]
     Active Substance: COBICISTAT\ELVITEGRAVIR\EMTRICITABINE\TENOFOVIR ALAFENAMIDE FUMARATE
     Indication: HIV INFECTION
     Dosage: UNK
     Route: 065
     Dates: end: 20200915
  4. RISPERIDONE. [Interacting]
     Active Substance: RISPERIDONE
     Dosage: 5 MG, QD
     Route: 065
     Dates: start: 20200913, end: 20200914
  5. DESVENLAFAXINE [DESVENLAFAXINE SUCCINATE] [Concomitant]
     Dosage: 100 MG, UNK
  6. DESVENLAFAXINE [DESVENLAFAXINE SUCCINATE] [Concomitant]
     Dosage: 50 MG, UNK
     Dates: start: 20200910, end: 20200911
  7. RISPERIDONE. [Interacting]
     Active Substance: RISPERIDONE
     Dosage: 3 MG, QD
     Route: 065
     Dates: start: 20200910, end: 20200912
  8. QUETIAPINE. [Interacting]
     Active Substance: QUETIAPINE
     Dosage: UNK
     Route: 065
  9. RISPERIDONE. [Interacting]
     Active Substance: RISPERIDONE
     Dosage: 4 MG, QD
     Route: 065
     Dates: start: 20200912, end: 20200913

REACTIONS (16)
  - Hyperhidrosis [Not Recovered/Not Resolved]
  - Neuroleptic malignant syndrome [Unknown]
  - Blood creatine phosphokinase increased [Unknown]
  - Schizophreniform disorder [Unknown]
  - Confusional state [Not Recovered/Not Resolved]
  - Eye irritation [Not Recovered/Not Resolved]
  - Anxiety [Unknown]
  - Pyrexia [Unknown]
  - Major depression [Not Recovered/Not Resolved]
  - Mental status changes [Not Recovered/Not Resolved]
  - Hypertension [Recovered/Resolved]
  - Catatonia [Not Recovered/Not Resolved]
  - Tachycardia [Unknown]
  - Drug interaction [Unknown]
  - Drug interaction [Not Recovered/Not Resolved]
  - Musculoskeletal stiffness [Not Recovered/Not Resolved]

NARRATIVE: CASE EVENT DATE: 202004
